FAERS Safety Report 4927956-2 (Version None)
Quarter: 2006Q1

REPORT INFORMATION
  Report Type: 
  Country: None (occurrence: None)
  Receive Date: 20060223
  Receipt Date: 20060210
  Transmission Date: 20060701
  Serious: Yes (Death)
  Sender: FDA-Public Use
  Company Number: 2006021192

PATIENT
  Age: 61 Year
  Sex: Male

DRUGS (4)
  1. CELEBREX [Suspect]
     Indication: SCIATICA
     Dosage: 1 DOSE FORM (1 IN 1 D),ORAL
     Route: 048
     Dates: start: 20040901
  2. KETOPROFEN [Suspect]
     Indication: SCIATICA
     Dosage: 100 MG (100 MG, 1 IN 1 D), INTRAMUSCULAR
     Route: 030
     Dates: start: 20040901
  3. AMITRIPTYLINE W/PERPHANAZINE [Suspect]
     Indication: SCIATICA
     Dosage: ORAL
     Route: 048
     Dates: start: 20040901
  4. ... [Suspect]

REACTIONS (20)
  - ASCITES [None]
  - BILIARY CIRRHOSIS [None]
  - BILIARY TRACT DISORDER [None]
  - CHOLELITHIASIS [None]
  - CHOLESTASIS [None]
  - COMA [None]
  - CYTOLYTIC HEPATITIS [None]
  - DRUG TOXICITY [None]
  - GLYCOSURIA [None]
  - HAEMATURIA [None]
  - HAEMOGLOBIN DECREASED [None]
  - HEPATIC FAILURE [None]
  - HEPATITIS CHOLESTATIC [None]
  - HEPATORENAL SYNDROME [None]
  - KIDNEY FIBROSIS [None]
  - NEPHRITIS INTERSTITIAL [None]
  - PLATELET COUNT DECREASED [None]
  - RENAL FAILURE ACUTE [None]
  - RENAL TUBULAR NECROSIS [None]
  - SEPTIC SHOCK [None]
